FAERS Safety Report 9531968 (Version 2)
Quarter: 2014Q1

REPORT INFORMATION
  Report Type: Spontaneous
  Country: US (occurrence: US)
  Receive Date: 20130918
  Receipt Date: 20140207
  Transmission Date: 20141002
  Serious: Yes (Hospitalization)
  Sender: FDA-Public Use
  Company Number: US-BAYER-2013-112636

PATIENT
  Age: 34 Year
  Sex: Female
  Weight: 56.69 kg

DRUGS (2)
  1. MIRENA [Suspect]
     Indication: CONTRACEPTION
     Dosage: 20 MCG/24HR, CONT
     Route: 015
     Dates: start: 20090204, end: 201009
  2. SYNTHROID [Concomitant]
     Indication: THYROID DISORDER
     Dosage: UNK
     Dates: start: 1990

REACTIONS (10)
  - Uterine perforation [None]
  - Pain [None]
  - Injury [None]
  - Device difficult to use [None]
  - Emotional distress [None]
  - Scar [None]
  - Psychological trauma [None]
  - Infertility female [None]
  - Device issue [None]
  - Menstrual disorder [None]
